FAERS Safety Report 23600189 (Version 2)
Quarter: 2024Q2

REPORT INFORMATION
  Report Type: Spontaneous
  Country: FR (occurrence: FR)
  Receive Date: 20240306
  Receipt Date: 20240515
  Transmission Date: 20240716
  Serious: Yes (Hospitalization)
  Sender: FDA-Public Use
  Company Number: FR-SUN PHARMACEUTICAL INDUSTRIES LTD-2024RR-434177

PATIENT
  Age: 72 Year
  Sex: Male
  Weight: 104 kg

DRUGS (1)
  1. ESOMEPRAZOLE [Suspect]
     Active Substance: ESOMEPRAZOLE
     Indication: Product used for unknown indication
     Dosage: 80 MILLIGRAM, BID
     Route: 048
     Dates: end: 20231109

REACTIONS (3)
  - Hypomagnesaemia [Recovering/Resolving]
  - Hypocalcaemia [Recovered/Resolved]
  - Hypokalaemia [Recovered/Resolved]

NARRATIVE: CASE EVENT DATE: 20231107
